FAERS Safety Report 8477756-4 (Version None)
Quarter: 2012Q2

REPORT INFORMATION
  Report Type: 
  Country: None (occurrence: None)
  Receive Date: 20120629
  Receipt Date: 20110608
  Transmission Date: 20120825
  Serious: No
  Sender: FDA-Public Use
  Company Number: US-GLAXOSMITHKLINE-A0924232A

PATIENT
  Age: 39 Year
  Sex: Male

DRUGS (3)
  1. VENTOLIN [Suspect]
     Indication: ASTHMA
     Route: 055
  2. CHANTIX [Concomitant]
  3. ADVAIR DISKUS 100/50 [Concomitant]

REACTIONS (2)
  - DYSPNOEA [None]
  - PRODUCT QUALITY ISSUE [None]
